FAERS Safety Report 13955753 (Version 2)
Quarter: 2018Q1

REPORT INFORMATION
  Report Type: Spontaneous
  Country: US (occurrence: US)
  Receive Date: 20170911
  Receipt Date: 20180116
  Transmission Date: 20180508
  Serious: No
  Sender: FDA-Public Use
  Company Number: US-DSJP-DSU-2017-136247

PATIENT

DRUGS (5)
  1. BENICAR HCT [Suspect]
     Active Substance: HYDROCHLOROTHIAZIDE\OLMESARTAN MEDOXOMIL
     Indication: HYPERTENSION
     Dosage: 20/12.5MG DAILY
     Route: 048
     Dates: start: 20041112, end: 20150625
  2. BENICAR HCT [Suspect]
     Active Substance: HYDROCHLOROTHIAZIDE\OLMESARTAN MEDOXOMIL
     Dosage: 40-12.5 MG
     Route: 048
     Dates: start: 20041112, end: 20150625
  3. AZOR [Suspect]
     Active Substance: AMLODIPINE BESYLATE\OLMESARTAN MEDOXOMIL
     Indication: HYPERTENSION
     Dosage: 5/40 MG
     Dates: start: 20041112, end: 20150625
  4. AZOR [Suspect]
     Active Substance: AMLODIPINE BESYLATE\OLMESARTAN MEDOXOMIL
     Dosage: 10/40 MG , QD
     Route: 048
     Dates: start: 20041112, end: 20150625
  5. BENICAR HCT [Suspect]
     Active Substance: HYDROCHLOROTHIAZIDE\OLMESARTAN MEDOXOMIL
     Dosage: 40-25 MG , QD
     Route: 048
     Dates: start: 20041112, end: 20150625

REACTIONS (5)
  - Gastrooesophageal reflux disease [Unknown]
  - Gastritis [Recovering/Resolving]
  - Haematochezia [Unknown]
  - Hernia [Unknown]
  - Diverticulum [Unknown]

NARRATIVE: CASE EVENT DATE: 20041112
